FAERS Safety Report 21155244 (Version 1)
Quarter: 2022Q3

REPORT INFORMATION
  Report Type: Spontaneous
  Country: CN (occurrence: CN)
  Receive Date: 20220801
  Receipt Date: 20220801
  Transmission Date: 20221027
  Serious: Yes (Hospitalization, Other)
  Sender: FDA-Public Use
  Company Number: CN-SUN PHARMACEUTICAL INDUSTRIES LTD-2022R1-346187

PATIENT
  Age: 46 Year
  Sex: Male

DRUGS (3)
  1. CLONAZEPAM [Interacting]
     Active Substance: CLONAZEPAM
     Indication: Insomnia
     Dosage: 500 MILLIGRAM, DAILY
     Route: 065
  2. CLOZAPINE [Interacting]
     Active Substance: CLOZAPINE
     Indication: Schizophrenia
     Dosage: 150 MILLIGRAM, DAILY
     Route: 065
  3. RIFAMPIN [Interacting]
     Active Substance: RIFAMPIN
     Indication: Tuberculosis
     Dosage: UNK
     Route: 065

REACTIONS (9)
  - Intentional overdose [Unknown]
  - Intentional product misuse [Unknown]
  - Withdrawal syndrome [Unknown]
  - Drug dependence [Unknown]
  - Drug interaction [Unknown]
  - Dysarthria [Unknown]
  - Tremor [Unknown]
  - Hyperhidrosis [Unknown]
  - Palpitations [Unknown]
